FAERS Safety Report 8890236 (Version 3)
Quarter: 2012Q4

REPORT INFORMATION
  Report Type: 
  Country: GB (occurrence: GB)
  Receive Date: 20121107
  Receipt Date: 20121127
  Transmission Date: 20130627
  Serious: Yes (Other)
  Sender: FDA-Public Use
  Company Number: GB-JNJFOC-20121015968

PATIENT
  Sex: Female

DRUGS (3)
  1. PALEXIA SR [Suspect]
     Indication: PAIN
     Route: 048
     Dates: start: 201201, end: 2012
  2. PALEXIA SR [Suspect]
     Indication: PAIN
     Route: 048
     Dates: start: 2012
  3. MORPHINE [Concomitant]
     Indication: PAIN
     Route: 065

REACTIONS (3)
  - Brain neoplasm [Not Recovered/Not Resolved]
  - Headache [Not Recovered/Not Resolved]
  - Hyperhidrosis [Not Recovered/Not Resolved]
